FAERS Safety Report 23387914 (Version 2)
Quarter: 2024Q1

REPORT INFORMATION
  Report Type: Spontaneous
  Country: CZ (occurrence: CZ)
  Receive Date: 20240110
  Receipt Date: 20240116
  Transmission Date: 20240409
  Serious: Yes (Hospitalization)
  Sender: FDA-Public Use
  Company Number: CZ-PFIZER INC-PV202400002320

PATIENT
  Age: 44 Year
  Sex: Female

DRUGS (11)
  1. METHYLPREDNISOLONE [Suspect]
     Active Substance: METHYLPREDNISOLONE
     Indication: Myasthenia gravis
     Dosage: 8 MG, 1X/DAY
     Dates: start: 202203
  2. METHYLPREDNISOLONE [Suspect]
     Active Substance: METHYLPREDNISOLONE
     Dosage: 12 MG, 1X/DAY
     Dates: start: 202208
  3. METHYLPREDNISOLONE [Suspect]
     Active Substance: METHYLPREDNISOLONE
     Dosage: 24 MG, 1X/DAY
     Dates: start: 202212
  4. METHYLPREDNISOLONE [Suspect]
     Active Substance: METHYLPREDNISOLONE
     Dosage: 32 MG, 1X/DAY
     Dates: start: 202301
  5. METHYLPREDNISOLONE [Suspect]
     Active Substance: METHYLPREDNISOLONE
     Dosage: 1 G, 1X/DAY
  6. PYRIDOSTIGMINE [Concomitant]
     Active Substance: PYRIDOSTIGMINE
     Indication: Myasthenia gravis
     Dosage: 60 MG, 2X/DAY
     Dates: start: 202203
  7. PYRIDOSTIGMINE [Concomitant]
     Active Substance: PYRIDOSTIGMINE
     Dosage: 60 MG, 3X/DAY
     Dates: start: 202208
  8. PYRIDOSTIGMINE [Concomitant]
     Active Substance: PYRIDOSTIGMINE
     Dosage: 60 MG 5X A DAY
     Dates: start: 202212
  9. AMBENONIUM [Concomitant]
     Active Substance: AMBENONIUM
     Dosage: 1 DF, 1X/DAY
  10. AZATHIOPRINE [Concomitant]
     Active Substance: AZATHIOPRINE
     Indication: Myasthenia gravis
     Dosage: 50 MG, 3X/DAY
  11. AZATHIOPRINE [Concomitant]
     Active Substance: AZATHIOPRINE
     Dosage: 50 MG, 2X/DAY

REACTIONS (8)
  - Dyspnoea [Unknown]
  - Dysarthria [Unknown]
  - Dysphagia [Unknown]
  - Gait inability [Unknown]
  - Hirsutism [Unknown]
  - Acne [Unknown]
  - Cushingoid [Unknown]
  - Off label use [Unknown]

NARRATIVE: CASE EVENT DATE: 20220301
